FAERS Safety Report 9552394 (Version 1)
Quarter: 2013Q3

REPORT INFORMATION
  Report Type: Spontaneous
  Country: JP (occurrence: JP)
  Receive Date: 20130925
  Receipt Date: 20130925
  Transmission Date: 20140515
  Serious: Yes (Other)
  Sender: FDA-Public Use
  Company Number: JP-ASTELLAS-2013JP009735

PATIENT
  Age: 83 Year
  Sex: Female

DRUGS (13)
  1. VESICARE [Suspect]
     Dosage: 2.5 MG, BID
     Route: 048
     Dates: start: 201304
  2. MYSLEE [Concomitant]
     Route: 048
  3. URSODEOXYCHOLIC ACID [Concomitant]
     Route: 048
  4. BERAPROST SODIUM [Concomitant]
     Route: 048
  5. BIOFERMIN                          /01617201/ [Concomitant]
     Route: 048
  6. PANTOSIN [Concomitant]
     Route: 065
  7. BLOPRESS [Concomitant]
     Route: 048
  8. DONEPEZIL HYDROCHLORIDE [Concomitant]
     Route: 048
  9. RANITIDINE HYDROCHLORIDE [Concomitant]
     Route: 065
  10. ZETIA [Concomitant]
     Route: 048
  11. PREDONINE                          /00016201/ [Concomitant]
     Route: 065
  12. MAGLAX [Concomitant]
     Route: 048
  13. EBRANTIL                           /00631801/ [Concomitant]
     Route: 048

REACTIONS (2)
  - Intentional drug misuse [Unknown]
  - Cognitive disorder [Unknown]
